FAERS Safety Report 15458545 (Version 3)
Quarter: 2022Q4

REPORT INFORMATION
  Report Type: Spontaneous
  Country: GB (occurrence: GB)
  Receive Date: 20181003
  Receipt Date: 20221020
  Transmission Date: 20230112
  Serious: Yes (Death, Life-Threatening, Hospitalization, Disabling, Other)
  Sender: FDA-Public Use
  Company Number: GB-MYLANLABS-2018M1072483

PATIENT
  Age: 76 Year
  Sex: Male

DRUGS (12)
  1. CLARITHROMYCIN [Interacting]
     Active Substance: CLARITHROMYCIN
     Indication: Lower respiratory tract infection
     Dosage: 500 MG, BID
     Route: 042
     Dates: start: 20180127, end: 20180131
  2. TACROLIMUS [Interacting]
     Active Substance: TACROLIMUS
     Indication: Renal transplant
     Dosage: 1.5 MG, BID
     Route: 048
     Dates: start: 20180127, end: 20180131
  3. ALFACALCIDOL [Concomitant]
     Active Substance: ALFACALCIDOL
     Indication: Product used for unknown indication
     Dosage: 500 NG, QD
     Route: 048
  4. BETAHISTINE [Concomitant]
     Active Substance: BETAHISTINE
     Indication: Product used for unknown indication
     Dosage: 8 MG, MONTHLY
     Route: 048
  5. CHOLECALCIFEROL [Concomitant]
     Active Substance: CHOLECALCIFEROL
     Indication: Product used for unknown indication
     Dosage: 20 NG, MONTHLY
     Route: 048
  6. EPLERENONE [Concomitant]
     Active Substance: EPLERENONE
     Indication: Product used for unknown indication
     Dosage: 25 MG, MONTHLY
     Route: 048
  7. FUROSEMIDE [Concomitant]
     Active Substance: FUROSEMIDE
     Indication: Product used for unknown indication
     Dosage: 80 MG, MONTHLY
     Route: 048
  8. FUROSEMIDE [Concomitant]
     Active Substance: FUROSEMIDE
     Indication: Product used for unknown indication
     Dosage: 40 MG, UNK 12 PM
     Route: 048
  9. GLICLAZIDE [Concomitant]
     Active Substance: GLICLAZIDE
     Indication: Product used for unknown indication
     Dosage: 40 MG, MONTHLY
     Route: 048
  10. OMEPRAZOLE [Concomitant]
     Active Substance: OMEPRAZOLE
     Indication: Product used for unknown indication
     Dosage: 20 MG, MONTHLY
     Route: 048
  11. PREDNISOLONE [Concomitant]
     Active Substance: PREDNISOLONE
     Indication: Product used for unknown indication
     Dosage: 5 MG, MONTHLY
     Route: 048
  12. SENNA [Concomitant]
     Active Substance: SENNA LEAF\SENNOSIDES\SENNOSIDES A AND B
     Indication: Product used for unknown indication
     Dosage: 15 MG, UNK ON
     Route: 048

REACTIONS (34)
  - Drug interaction [Fatal]
  - Acute kidney injury [Fatal]
  - Rash [Fatal]
  - Lung consolidation [Fatal]
  - Sepsis [Fatal]
  - Pyrexia [Fatal]
  - Hypoglycaemia [Fatal]
  - Rales [Fatal]
  - Malaise [Fatal]
  - Dyspnoea [Fatal]
  - Drug level increased [Fatal]
  - Toxicity to various agents [Fatal]
  - Cardiac failure congestive [Fatal]
  - Dyspnoea [Fatal]
  - Lower respiratory tract infection [Fatal]
  - Productive cough [Fatal]
  - Multimorbidity [Fatal]
  - Oesophageal carcinoma [Fatal]
  - Cough [Fatal]
  - Pleural effusion [Fatal]
  - Inflammatory marker increased [Fatal]
  - Ascites [Fatal]
  - Toxicity to various agents [Fatal]
  - Transplant dysfunction [Fatal]
  - Soft tissue mass [Fatal]
  - Cardiomegaly [Fatal]
  - Pneumonia [Fatal]
  - Oesophageal perforation [Fatal]
  - Myocardial ischaemia [Fatal]
  - Superinfection [Fatal]
  - Renal impairment [Fatal]
  - Haemoptysis [Unknown]
  - Immunosuppressant drug level increased [Fatal]
  - Dysphagia [Fatal]

NARRATIVE: CASE EVENT DATE: 20180118
